FAERS Safety Report 20847850 (Version 1)
Quarter: 2022Q2

REPORT INFORMATION
  Report Type: Spontaneous
  Country: US (occurrence: US)
  Receive Date: 20220519
  Receipt Date: 20220519
  Transmission Date: 20220720
  Serious: Yes (Hospitalization, Other)
  Sender: FDA-Public Use
  Company Number: US-ALKEM LABORATORIES LIMITED-US-ALKEM-2022-04652

PATIENT
  Age: 26 Year
  Sex: Male
  Weight: 83.9 kg

DRUGS (2)
  1. AMPHETAMINE SULFATE [Suspect]
     Active Substance: AMPHETAMINE SULFATE
     Indication: Product used for unknown indication
     Dosage: 20 MILLIGRAM
     Route: 065
  2. METHADONE HYDROCHLORIDE [Suspect]
     Active Substance: METHADONE HYDROCHLORIDE
     Indication: Product used for unknown indication
     Dosage: 20-25 ML (200-250 MG)
     Route: 065

REACTIONS (9)
  - Apnoea [Unknown]
  - Malaise [Unknown]
  - Dizziness [Unknown]
  - Vision blurred [Unknown]
  - Feeling of relaxation [Unknown]
  - Overdose [Unknown]
  - Toxicity to various agents [Unknown]
  - Cyanosis [Unknown]
  - Sinus tachycardia [Unknown]
